FAERS Safety Report 7225456-0 (Version None)
Quarter: 2011Q1

REPORT INFORMATION
  Report Type: 
  Country: None (occurrence: None)
  Receive Date: 20110113
  Receipt Date: 20110110
  Transmission Date: 20110831
  Serious: No
  Sender: FDA-Public Use
  Company Number: US-PFIZER INC-2011006803

PATIENT
  Sex: Female
  Weight: 74.8 kg

DRUGS (3)
  1. PREMARIN [Suspect]
     Indication: VULVOVAGINAL DISCOMFORT
  2. PREMARIN [Suspect]
     Indication: VULVOVAGINAL ERYTHEMA
     Dosage: UNK
     Route: 067
     Dates: start: 20110103
  3. PRAVASTATIN [Concomitant]
     Indication: BLOOD CHOLESTEROL INCREASED
     Dosage: 20 MG, UNK

REACTIONS (2)
  - DRUG DOSE OMISSION [None]
  - MYALGIA [None]
